FAERS Safety Report 15362310 (Version 2)
Quarter: 2018Q3

REPORT INFORMATION
  Report Type: Spontaneous
  Country: AT (occurrence: AT)
  Receive Date: 20180907
  Receipt Date: 20180925
  Transmission Date: 20181010
  Serious: Yes (Hospitalization)
  Sender: FDA-Public Use
  Company Number: AT-CELGENEUS-AUT-20180901326

PATIENT
  Age: 75 Year
  Sex: Male
  Weight: 95 kg

DRUGS (12)
  1. REVLIMID [Suspect]
     Active Substance: LENALIDOMIDE
     Indication: PLASMA CELL MYELOMA
     Route: 048
     Dates: start: 20160908
  2. MEXALEN [Concomitant]
     Active Substance: ACETAMINOPHEN
     Indication: OSTEOMYELITIS
     Dosage: 2000 MILLIGRAM
     Route: 048
     Dates: start: 20180131
  3. LASIX [Concomitant]
     Active Substance: FUROSEMIDE
     Indication: OEDEMA PERIPHERAL
     Dosage: 30 MILLIGRAM
     Route: 048
     Dates: start: 20170120
  4. HYDROGEN PEROXIDE. [Concomitant]
     Active Substance: HYDROGEN PEROXIDE
     Indication: OSTEONECROSIS OF JAW
     Route: 048
     Dates: start: 20171005
  5. VITAMINS WITH MINERALS [Concomitant]
     Active Substance: MINERALS\VITAMINS
     Indication: OSTEOPOROSIS PROPHYLAXIS
     Dosage: 1000 MILLIGRAM
     Route: 048
     Dates: start: 20160908
  6. CANDIBENE [Concomitant]
     Indication: PRODUCT USED FOR UNKNOWN INDICATION
     Route: 061
     Dates: start: 20170906
  7. ENTEROBENE [Concomitant]
     Indication: DIARRHOEA
     Dosage: 1 DOSAGE FORMS
     Route: 048
     Dates: start: 20180601
  8. OTRIVIN [Concomitant]
     Active Substance: XYLOMETAZOLINE
     Indication: SINUSITIS
     Route: 055
     Dates: start: 20180131
  9. DEXAMETHASONE. [Suspect]
     Active Substance: DEXAMETHASONE
     Indication: PLASMA CELL MYELOMA
     Route: 065
     Dates: start: 20160908, end: 20180809
  10. AQUAPHORIL [Concomitant]
     Active Substance: XIPAMIDE
     Indication: HYPERTENSION
     Dosage: 120 MILLIGRAM
     Route: 048
     Dates: start: 20160824
  11. THROMBO ASS [Concomitant]
     Active Substance: ASPIRIN
     Indication: THROMBOSIS PROPHYLAXIS
     Dosage: 100 MILLIGRAM
     Route: 048
     Dates: start: 20180207
  12. OSPEN [Concomitant]
     Active Substance: PENICILLIN V
     Indication: JAW FISTULA
     Dosage: 4500 MILLIGRAM
     Route: 048
     Dates: start: 20180808

REACTIONS (3)
  - Osteonecrosis of jaw [Recovered/Resolved]
  - Jaw fistula [Recovered/Resolved]
  - Primary sequestrum [Recovered/Resolved]

NARRATIVE: CASE EVENT DATE: 20180808
